FAERS Safety Report 6305708-9 (Version None)
Quarter: 2009Q3

REPORT INFORMATION
  Report Type: 
  Country: None (occurrence: None)
  Receive Date: 20090812
  Receipt Date: 20080124
  Transmission Date: 20100115
  Serious: Yes (Other)
  Sender: FDA-Public Use
  Company Number: US-ASTRAZENECA-2006UW25402

PATIENT
  Age: 8699 Day
  Sex: Male
  Weight: 158.8 kg

DRUGS (14)
  1. SEROQUEL [Suspect]
     Indication: INSOMNIA
     Route: 048
     Dates: start: 20040720
  2. SEROQUEL [Suspect]
     Indication: ANXIETY
     Route: 048
     Dates: start: 20040720
  3. SEROQUEL [Suspect]
     Indication: DEPRESSION
     Route: 048
     Dates: start: 20040720
  4. WELLBUTRIN XL [Concomitant]
     Indication: ANXIETY
     Dosage: 150-450 MG
     Dates: start: 20040720
  5. WELLBUTRIN XL [Concomitant]
     Indication: DEPRESSION
     Dosage: 150-450 MG
     Dates: start: 20040720
  6. TRAZODONE HCL [Concomitant]
     Indication: INSOMNIA
     Dosage: 50-100 MG
     Dates: start: 20060327
  7. ACCUPRIL [Concomitant]
     Indication: HYPERTENSION
     Dates: start: 20060911
  8. LASIX [Concomitant]
     Indication: OEDEMA PERIPHERAL
     Dates: start: 20040819
  9. PREVACID [Concomitant]
     Indication: GASTROOESOPHAGEAL REFLUX DISEASE
     Dates: start: 20050516
  10. CYMBALTA [Concomitant]
     Indication: DEPRESSION
     Dates: start: 20060327
  11. CYMBALTA [Concomitant]
     Indication: ANXIETY
     Dates: start: 20060327
  12. ADVAIR HFA [Concomitant]
     Dosage: 100/50 ONE PUFF TWICE DAILY
     Dates: start: 20040819
  13. ZAROXOLYN [Concomitant]
     Dosage: 2.5 MG 2 TAB DAILY
     Dates: start: 20040819
  14. METFORMIN [Concomitant]
     Indication: BLOOD GLUCOSE INCREASED
     Dosage: TWO TIMES A DAY
     Dates: start: 20050722

REACTIONS (6)
  - BLOOD GLUCOSE INCREASED [None]
  - DIABETES MELLITUS [None]
  - DIABETIC EYE DISEASE [None]
  - HYPERGLYCAEMIA [None]
  - HYPOGLYCAEMIA [None]
  - TYPE 2 DIABETES MELLITUS [None]
